FAERS Safety Report 4995345-0 (Version None)
Quarter: 2006Q2

REPORT INFORMATION
  Report Type: 
  Country: None (occurrence: None)
  Receive Date: 20060508
  Receipt Date: 20051021
  Transmission Date: 20061013
  Serious: Yes (Hospitalization)
  Sender: FDA-Public Use
  Company Number: US-MERCK-0510USA08832

PATIENT
  Age: 51 Year
  Sex: Male
  Weight: 95 kg

DRUGS (16)
  1. VIOXX [Suspect]
     Indication: ARTHRITIS
     Route: 048
     Dates: start: 20000801, end: 20040601
  2. AMBIEN [Concomitant]
     Route: 065
  3. LORCET-HD [Concomitant]
     Route: 065
  4. OXYCONTIN [Concomitant]
     Route: 065
  5. FLEXERIL [Concomitant]
     Route: 065
  6. LOPRESSOR [Concomitant]
     Route: 065
  7. ZOCOR [Concomitant]
     Route: 065
  8. IMDUR [Concomitant]
     Route: 065
  9. PLAVIX [Concomitant]
     Route: 065
  10. MS CONTIN [Concomitant]
     Route: 065
  11. FLONASE [Concomitant]
     Route: 065
  12. PHENERGAN EXPECTORANT W/ CODEINE [Concomitant]
     Route: 065
  13. NITROGLYCERIN [Concomitant]
     Route: 065
  14. TRAZODONE HYDROCHLORIDE [Concomitant]
     Route: 065
  15. FUROSEMIDE [Concomitant]
     Route: 065
  16. RANITIDINE [Concomitant]
     Route: 065

REACTIONS (1)
  - MYOCARDIAL INFARCTION [None]
